FAERS Safety Report 8901631 (Version 1)
Quarter: 2012Q4

REPORT INFORMATION
  Report Type: Spontaneous
  Country: US (occurrence: None)
  Receive Date: 20121108
  Receipt Date: 20121108
  Transmission Date: 20130627
  Serious: Yes (Death)
  Sender: FDA-Public Use
  Company Number: None

PATIENT
  Sex: Male

DRUGS (1)
  1. CODEINE [Suspect]
     Indication: POSTOPERATIVE PAIN

REACTIONS (1)
  - Cardio-respiratory arrest [None]
